FAERS Safety Report 9794299 (Version 1)
Quarter: 2014Q1

REPORT INFORMATION
  Report Type: Spontaneous
  Country: US (occurrence: US)
  Receive Date: 20140102
  Receipt Date: 20140102
  Transmission Date: 20141002
  Serious: No
  Sender: FDA-Public Use
  Company Number: US-AMGEN-USASP2013087985

PATIENT
  Age: 24 Year
  Sex: Male

DRUGS (1)
  1. ENBREL [Suspect]
     Indication: PSORIASIS
     Dosage: UNK MG ONCE A WEEK
     Route: 065
     Dates: start: 201303, end: 201310

REACTIONS (2)
  - Palpitations [Recovered/Resolved]
  - Psoriasis [Recovered/Resolved]
